FAERS Safety Report 11586641 (Version 3)
Quarter: 2016Q4

REPORT INFORMATION
  Report Type: Spontaneous
  Country: US (occurrence: US)
  Receive Date: 20151001
  Receipt Date: 20161228
  Transmission Date: 20170206
  Serious: No
  Sender: FDA-Public Use
  Company Number: US-PFIZER INC-2015239466

PATIENT
  Age: 69 Year
  Sex: Female

DRUGS (2)
  1. SUTENT [Suspect]
     Active Substance: SUNITINIB MALATE
     Dosage: 50 MG, CYCLIC (Q DAY 2 WEEKS ON, 1 WEEK OFF)
     Route: 048
  2. SUTENT [Suspect]
     Active Substance: SUNITINIB MALATE
     Indication: RENAL CANCER
     Dosage: 50 MG, CYCLIC (DAILY FOR 14 DAYS THEN OFF 7 DAYS)
     Route: 048
     Dates: start: 20150801

REACTIONS (6)
  - Aphthous ulcer [Recovered/Resolved]
  - Nasal discomfort [Unknown]
  - Blood iron decreased [Unknown]
  - Vitamin B12 decreased [Unknown]
  - Fatigue [Unknown]
  - Oxygen saturation decreased [Unknown]
